FAERS Safety Report 4382084-2 (Version None)
Quarter: 2004Q2

REPORT INFORMATION
  Report Type: 
  Country: None (occurrence: None)
  Receive Date: 20040615
  Receipt Date: 20040602
  Transmission Date: 20050107
  Serious: Yes (Hospitalization)
  Sender: FDA-Public Use
  Company Number: 04P-163-0246943-00

PATIENT
  Age: 24 Year
  Sex: Male
  Weight: 70 kg

DRUGS (5)
  1. BIAXIN [Suspect]
     Indication: PNEUMONIA
     Dosage: 500 MG, 2 IN 1 D, PER ORAL
     Route: 048
     Dates: start: 20031222
  2. PSEUDOEPHEDRINE HYDROCHLORIDE [Suspect]
     Dates: start: 20031201, end: 20031225
  3. COLD CARE [Suspect]
     Dates: start: 20031201, end: 20031225
  4. MUTIVITAMINS [Concomitant]
  5. IBUPROFEN [Concomitant]

REACTIONS (22)
  - ABNORMAL BEHAVIOUR [None]
  - AGGRESSION [None]
  - ANXIETY [None]
  - APNOEA [None]
  - CATATONIA [None]
  - CONFUSIONAL STATE [None]
  - DEHYDRATION [None]
  - DISSOCIATION [None]
  - DIZZINESS [None]
  - EUPHORIC MOOD [None]
  - EXCORIATION [None]
  - FLIGHT OF IDEAS [None]
  - HOMICIDAL IDEATION [None]
  - MENTAL IMPAIRMENT [None]
  - NASAL CONGESTION [None]
  - PHOBIA [None]
  - PSYCHOTIC DISORDER [None]
  - SCHIZOAFFECTIVE DISORDER [None]
  - SCHIZOTYPAL PERSONALITY DISORDER [None]
  - SELF-INJURIOUS IDEATION [None]
  - SINUS DISORDER [None]
  - SPEECH DISORDER [None]
